FAERS Safety Report 6871900-8 (Version None)
Quarter: 2010Q2

REPORT INFORMATION
  Report Type: 
  Country: None (occurrence: None)
  Receive Date: 20100528
  Receipt Date: 20100426
  Transmission Date: 20101027
  Serious: Yes (Other)
  Sender: FDA-Public Use
  Company Number: 2010033967

PATIENT
  Sex: Male

DRUGS (2)
  1. TOVIAZ [Suspect]
     Dosage: 4 MG
     Dates: start: 20091201, end: 20100202
  2. TAMSULOSIN HCL [Concomitant]

REACTIONS (1)
  - URINARY RETENTION [None]
